FAERS Safety Report 7228920-3 (Version None)
Quarter: 2011Q1

REPORT INFORMATION
  Report Type: 
  Country: None (occurrence: None)
  Receive Date: 20110117
  Receipt Date: 20110104
  Transmission Date: 20110831
  Serious: Yes (Hospitalization, Other)
  Sender: FDA-Public Use
  Company Number: US-CELGENEUS-163-21880-10122065

PATIENT
  Sex: Female

DRUGS (3)
  1. TARCEVA [Concomitant]
     Route: 065
     Dates: start: 20090901
  2. COUMADIN [Concomitant]
     Route: 065
     Dates: start: 20090901
  3. REVLIMID [Suspect]
     Route: 048
     Dates: start: 20080501

REACTIONS (3)
  - LUNG NEOPLASM MALIGNANT [None]
  - SYNCOPE [None]
  - DEEP VEIN THROMBOSIS [None]
